FAERS Safety Report 6322709-5 (Version None)
Quarter: 2009Q3

REPORT INFORMATION
  Report Type: 
  Country: None (occurrence: None)
  Receive Date: 20090821
  Receipt Date: 20090821
  Transmission Date: 20100115
  Serious: Yes (Other)
  Sender: FDA-Public Use
  Company Number: None

PATIENT
  Age: 58 Year
  Sex: Female
  Weight: 58.9676 kg

DRUGS (3)
  1. FENTANYL TRANSDERMAL SYSTEM [Suspect]
     Indication: FIBROMYALGIA
     Dosage: 200 MCG/H EVERY 3 DAYS TRANSDERMAL
     Route: 062
     Dates: start: 20090817, end: 20090820
  2. FENTANYL TRANSDERMAL SYSTEM [Suspect]
     Indication: PAIN
     Dosage: 200 MCG/H EVERY 3 DAYS TRANSDERMAL
     Route: 062
     Dates: start: 20090817, end: 20090820
  3. FENTANYL TRANSDERMAL SYSTEM [Suspect]
     Indication: SYSTEMIC LUPUS ERYTHEMATOSUS
     Dosage: 200 MCG/H EVERY 3 DAYS TRANSDERMAL
     Route: 062
     Dates: start: 20090817, end: 20090820

REACTIONS (3)
  - DEVICE ADHESION ISSUE [None]
  - PRODUCT QUALITY ISSUE [None]
  - PRODUCT SUBSTITUTION ISSUE [None]
